FAERS Safety Report 19432759 (Version 2)
Quarter: 2021Q3

REPORT INFORMATION
  Report Type: Report from Study
  Country: CO (occurrence: CO)
  Receive Date: 20210617
  Receipt Date: 20210730
  Transmission Date: 20211014
  Serious: Yes (Other)
  Sender: FDA-Public Use
  Company Number: PHHY2019CO219487

PATIENT
  Age: 42 Year
  Sex: Male
  Weight: 72 kg

DRUGS (5)
  1. COSENTYX [Suspect]
     Active Substance: SECUKINUMAB
     Dosage: 150 MG, QMO
     Route: 058
     Dates: start: 20190821
  2. COSENTYX [Suspect]
     Active Substance: SECUKINUMAB
     Dosage: 150 MG, QMO
     Route: 058
  3. TAMSULOSIN HYDROCHLORIDE. [Suspect]
     Active Substance: TAMSULOSIN HYDROCHLORIDE
     Indication: URETHRAL OBSTRUCTION
     Dosage: 0.4 MG, QD
     Route: 048
     Dates: start: 2018
  4. COSENTYX [Suspect]
     Active Substance: SECUKINUMAB
     Indication: ANKYLOSING SPONDYLITIS
     Dosage: 150 MG, QMO
     Route: 058
     Dates: start: 201808, end: 20210313
  5. ROSUVASTATIN. [Concomitant]
     Active Substance: ROSUVASTATIN
     Indication: BLOOD CHOLESTEROL
     Dosage: 40 MG, QD, ONE YEAR AGO
     Route: 048

REACTIONS (5)
  - Prostatic obstruction [Unknown]
  - Prostatic adenoma [Unknown]
  - Urethral obstruction [Unknown]
  - Disease progression [Unknown]
  - Back pain [Unknown]

NARRATIVE: CASE EVENT DATE: 2018
